FAERS Safety Report 21310999 (Version 1)
Quarter: 2022Q3

REPORT INFORMATION
  Report Type: Spontaneous
  Country: US (occurrence: None)
  Receive Date: 20220909
  Receipt Date: 20220909
  Transmission Date: 20221026
  Serious: No
  Sender: FDA-Public Use
  Company Number: US-ARIS GLOBAL-202112-2327

PATIENT
  Age: 68 Year
  Sex: Female

DRUGS (17)
  1. OXERVATE [Suspect]
     Active Substance: CENEGERMIN-BKBJ
     Indication: Neurotrophic keratopathy
     Route: 047
     Dates: start: 20211216, end: 20211219
  2. OXERVATE [Suspect]
     Active Substance: CENEGERMIN-BKBJ
     Route: 047
     Dates: start: 20211230
  3. ARTIFICIAL TEARS [Concomitant]
     Active Substance: GLYCERIN\HYPROMELLOSES\POLYETHYLENE GLYCOL 400
  4. LYSINE [Concomitant]
     Active Substance: LYSINE
  5. VITAMIN D3 [Concomitant]
     Active Substance: CHOLECALCIFEROL
  6. TRESIBA [Concomitant]
     Active Substance: INSULIN DEGLUDEC
  7. NOVOLIN NOS [Concomitant]
     Active Substance: INSULIN HUMAN
     Dosage: 70-30 IU/ML VIAL
  8. ASPIRIN [Concomitant]
     Active Substance: ASPIRIN
  9. ACYCLOVIR [Concomitant]
     Active Substance: ACYCLOVIR
  10. HYDROCHLOROTHIAZIDE\LOSARTAN [Concomitant]
     Active Substance: HYDROCHLOROTHIAZIDE\LOSARTAN
  11. LEVOTHYROXINE [Concomitant]
     Active Substance: LEVOTHYROXINE
  12. ATORVASTATIN CALCIUM [Concomitant]
     Active Substance: ATORVASTATIN CALCIUM
  13. METFORMIN HYDROCHLORIDE [Concomitant]
     Active Substance: METFORMIN HYDROCHLORIDE
  14. VALTREX [Concomitant]
     Active Substance: VALACYCLOVIR HYDROCHLORIDE
     Indication: Herpes simplex
     Route: 048
     Dates: start: 20211123
  15. PREDNISOLONE [Concomitant]
     Active Substance: PREDNISOLONE
  16. MOXIFLOXACIN [Concomitant]
     Active Substance: MOXIFLOXACIN
     Indication: Eye ulcer
     Route: 047
     Dates: start: 20211123
  17. PREDNISOLONE ACETATE [Concomitant]
     Active Substance: PREDNISOLONE ACETATE
     Indication: Eye swelling
     Route: 047
     Dates: start: 20211019

REACTIONS (4)
  - Eye swelling [Not Recovered/Not Resolved]
  - Eye ulcer [Not Recovered/Not Resolved]
  - Ocular hyperaemia [Recovering/Resolving]
  - Eye irritation [Unknown]

NARRATIVE: CASE EVENT DATE: 20211214
